FAERS Safety Report 4554620-4 (Version None)
Quarter: 2005Q1

REPORT INFORMATION
  Report Type: 
  Country: None (occurrence: None)
  Receive Date: 20050118
  Receipt Date: 20041028
  Transmission Date: 20050727
  Serious: Yes (Other)
  Sender: FDA-Public Use
  Company Number: PHBS2004BR14395

PATIENT
  Age: 63 Year
  Sex: Male

DRUGS (8)
  1. CLONAZEPAM [Concomitant]
     Dosage: 2 MG, QHS
     Route: 048
  2. AAS [Concomitant]
     Indication: AORTIC ANEURYSM
     Route: 065
  3. BUFEDIL [Concomitant]
     Dosage: 150 MG, QHS
     Route: 048
  4. PENTOXIFYLLINE [Concomitant]
     Indication: PROMOTION OF PERIPHERAL CIRCULATION
     Dosage: 400 MG, BID
     Route: 048
  5. OMEPRAZOLE [Concomitant]
     Route: 065
  6. TRILEPTAL [Suspect]
     Indication: CONVULSION
     Dosage: 300 MG, TID
     Route: 048
  7. URSACOL [Concomitant]
     Indication: HEPATOMEGALY
     Dosage: 300 MG, BID
     Route: 048
  8. RENITEC [Concomitant]
     Indication: HYPERTENSION
     Dosage: 10 MG, BID
     Route: 048

REACTIONS (4)
  - CONVULSION [None]
  - DROOLING [None]
  - HALLUCINATION [None]
  - PARTIAL SEIZURES [None]
